FAERS Safety Report 4827943-9 (Version None)
Quarter: 2005Q4

REPORT INFORMATION
  Report Type: 
  Country: None (occurrence: None)
  Receive Date: 20051115
  Receipt Date: 20051107
  Transmission Date: 20060501
  Serious: Yes (Hospitalization)
  Sender: FDA-Public Use
  Company Number: DE-BOEHRINGER INGELHEIM PHARMACEUTICALS, INC.-2005-DE-04686DE

PATIENT
  Sex: Male

DRUGS (8)
  1. MOBEC 15 MG TABLETTEN [Suspect]
     Route: 048
  2. ACCUPRO [Suspect]
     Route: 048
  3. GODAMED [Suspect]
     Route: 048
  4. ISMN [Suspect]
     Route: 048
  5. METROPROLOL [Suspect]
     Route: 048
  6. NEPHRAL [Suspect]
     Route: 048
  7. NIFE [Suspect]
     Route: 048
  8. SIMVABETA [Suspect]
     Route: 048

REACTIONS (5)
  - DRUG ABUSER [None]
  - HYPERTENSION [None]
  - SINUS BRADYCARDIA [None]
  - SUICIDE ATTEMPT [None]
  - VOMITING [None]
